FAERS Safety Report 24718238 (Version 1)
Quarter: 2024Q4

REPORT INFORMATION
  Report Type: Spontaneous
  Country: US (occurrence: None)
  Receive Date: 20241210
  Receipt Date: 20241210
  Transmission Date: 20250115
  Serious: Yes (Other)
  Sender: Public
  Company Number: None

PATIENT
  Sex: Female

DRUGS (5)
  1. ENBREL [Suspect]
     Active Substance: ETANERCEPT
     Indication: Spondyloarthropathy
     Dosage: FREQUENCY : WEEKLY;?
     Route: 058
     Dates: start: 20231219
  2. BUDESONIDE DR [Concomitant]
  3. CELEBREX [Concomitant]
     Active Substance: CELECOXIB
  4. ESCITALOPRAM [Concomitant]
     Active Substance: ESCITALOPRAM OXALATE
  5. VOQUEZNA [Concomitant]
     Active Substance: VONOPRAZAN FUMARATE

REACTIONS (2)
  - Foot operation [None]
  - Therapy interrupted [None]
